FAERS Safety Report 5589327-8 (Version None)
Quarter: 2008Q1

REPORT INFORMATION
  Report Type: 
  Country: None (occurrence: None)
  Receive Date: 20080114
  Receipt Date: 20080108
  Transmission Date: 20080703
  Serious: Yes (Other)
  Sender: FDA-Public Use
  Company Number: US-AVENTIS-200718243US

PATIENT
  Sex: Female

DRUGS (9)
  1. LANTUS [Suspect]
     Dosage: DOSE: UNK
     Route: 051
     Dates: end: 20070101
  2. ACTOS [Suspect]
     Dosage: DOSE: UNK
     Dates: end: 20071001
  3. HUMALOG [Concomitant]
     Route: 051
  4. HUMALOG [Concomitant]
     Route: 051
  5. HUMALOG [Concomitant]
     Dosage: FREQUENCY: BEFORE MEALS
     Route: 051
  6. INSULIN DETEMIR [Concomitant]
     Dosage: DOSE: UNK
  7. DRUG USED IN DIABETES [Concomitant]
     Route: 051
     Dates: start: 20071101
  8. DRUG USED IN DIABETES [Concomitant]
     Route: 051
     Dates: start: 20071001, end: 20071101
  9. DRUG USED IN DIABETES [Concomitant]
     Route: 051
     Dates: start: 20071001, end: 20071101

REACTIONS (2)
  - BLOOD GLUCOSE INCREASED [None]
  - WEIGHT INCREASED [None]
